FAERS Safety Report 17308107 (Version 1)
Quarter: 2020Q1

REPORT INFORMATION
  Report Type: Spontaneous
  Country: US (occurrence: US)
  Receive Date: 20200123
  Receipt Date: 20200123
  Transmission Date: 20200409
  Serious: No
  Sender: FDA-Public Use
  Company Number: US-ASTRAZENECA-2019SF90632

PATIENT
  Sex: Female
  Weight: 95.3 kg

DRUGS (2)
  1. GLIMIPERIDE [Concomitant]
     Active Substance: GLIMEPIRIDE
  2. BYDUREON BCISE [Suspect]
     Active Substance: EXENATIDE
     Indication: TYPE 2 DIABETES MELLITUS
     Route: 058

REACTIONS (2)
  - Injection site haemorrhage [Unknown]
  - Incorrect dose administered by device [Unknown]
